FAERS Safety Report 10429809 (Version 1)
Quarter: 2014Q3

REPORT INFORMATION
  Report Type: Spontaneous
  Country: US (occurrence: US)
  Receive Date: 20140904
  Receipt Date: 20140904
  Transmission Date: 20150326
  Serious: Yes (Hospitalization)
  Sender: FDA-Public Use
  Company Number: US-BAYER-2014-129385

PATIENT
  Age: 23 Year
  Sex: Female
  Weight: 62.59 kg

DRUGS (14)
  1. RHINOCORT AQUA [Concomitant]
     Active Substance: BUDESONIDE
     Route: 045
  2. YAZ [Suspect]
     Active Substance: DROSPIRENONE\ETHINYL ESTRADIOL
     Dosage: UNK
  3. ADVAIR HFA [Concomitant]
     Active Substance: FLUTICASONE PROPIONATE\SALMETEROL XINAFOATE
  4. PREDNISONE. [Concomitant]
     Active Substance: PREDNISONE
  5. ALBUTEROL. [Concomitant]
     Active Substance: ALBUTEROL
  6. FLONASE [Concomitant]
     Active Substance: FLUTICASONE PROPIONATE
  7. NASONEX [Concomitant]
     Active Substance: MOMETASONE FUROATE
  8. TYLENOL PM [DIPHENHYDRAMINE,PARACETAMOL] [Concomitant]
  9. SOLU-MEDROL [Concomitant]
     Active Substance: METHYLPREDNISOLONE SODIUM SUCCINATE
  10. ASTELIN [AZELASTINE HYDROCHLORIDE] [Concomitant]
     Active Substance: AZELASTINE HYDROCHLORIDE
     Route: 045
  11. ZYRTEC [CETIRIZINE HYDROCHLORIDE] [Concomitant]
  12. NEOSPORIN [BACITRACIN ZINC,NEOMYCIN SULFATE,POLYMYXIN B SULFATE] [Concomitant]
  13. COLACE [Concomitant]
     Active Substance: DOCUSATE SODIUM
  14. CEFTIN [Concomitant]
     Active Substance: CEFUROXIME AXETIL

REACTIONS (1)
  - Pulmonary embolism [None]

NARRATIVE: CASE EVENT DATE: 20111114
